FAERS Safety Report 19307300 (Version 1)
Quarter: 2021Q2

REPORT INFORMATION
  Report Type: Spontaneous
  Country: US (occurrence: US)
  Receive Date: 20210526
  Receipt Date: 20210526
  Transmission Date: 20210717
  Serious: Yes (Other)
  Sender: FDA-Public Use
  Company Number: US-BIOGEN-2021BI01013362

PATIENT
  Age: 8 Year
  Sex: Male

DRUGS (2)
  1. SPINRAZA [Suspect]
     Active Substance: NUSINERSEN
     Indication: SPINAL MUSCULAR ATROPHY
     Route: 065
     Dates: start: 20210412
  2. SPINRAZA [Suspect]
     Active Substance: NUSINERSEN
     Route: 065
     Dates: start: 20210514

REACTIONS (1)
  - Post lumbar puncture syndrome [Recovered/Resolved]

NARRATIVE: CASE EVENT DATE: 20210514
